FAERS Safety Report 7541409 (Version 2)
Quarter: 2013Q4

REPORT INFORMATION
  Report Type: Spontaneous
  Country: US (occurrence: US)
  Receive Date: 20100816
  Receipt Date: 20131230
  Transmission Date: 20140711
  Serious: Yes (Hospitalization, Other)
  Sender: FDA-Public Use
  Company Number: US-JNJFOC-20100703136

PATIENT
  Age: 53 Year
  Sex: Female
  Weight: 81.19 kg

DRUGS (4)
  1. REMICADE [Suspect]
     Indication: RHEUMATOID ARTHRITIS
     Route: 042
     Dates: end: 20100709
  2. REMICADE [Suspect]
     Indication: RHEUMATOID ARTHRITIS
     Route: 042
     Dates: start: 20100625
  3. TYLENOL [Concomitant]
     Indication: PREMEDICATION
     Route: 065
  4. CLARITIN [Concomitant]
     Indication: PREMEDICATION
     Route: 065

REACTIONS (8)
  - Chest pain [Unknown]
  - Troponin increased [Unknown]
  - Dyspnoea [Unknown]
  - Infusion related reaction [Unknown]
  - Cardiac enzymes increased [Recovered/Resolved]
  - Electrocardiogram abnormal [Unknown]
  - Haemoglobin decreased [Unknown]
  - Erythema [Unknown]
